FAERS Safety Report 7091215-5 (Version None)
Quarter: 2010Q4

REPORT INFORMATION
  Report Type: 
  Country: None (occurrence: None)
  Receive Date: 20101109
  Receipt Date: 20101029
  Transmission Date: 20110411
  Serious: No
  Sender: FDA-Public Use
  Company Number: DE-ASTRAZENECA-2010SE51827

PATIENT
  Sex: Female

DRUGS (3)
  1. SEROQUEL [Suspect]
     Route: 048
     Dates: start: 20090101
  2. SEROQUEL [Suspect]
     Route: 048
     Dates: start: 20100501
  3. SEROQUEL [Suspect]
     Dosage: 50 MG DAILY IN EVENING
     Route: 048
     Dates: start: 20100501

REACTIONS (2)
  - CONSTIPATION [None]
  - IRON DEFICIENCY ANAEMIA [None]
